FAERS Safety Report 8450400-8 (Version None)
Quarter: 2012Q2

REPORT INFORMATION
  Report Type: 
  Country: None (occurrence: None)
  Receive Date: 20120620
  Receipt Date: 20120614
  Transmission Date: 20120825
  Serious: Yes (Hospitalization)
  Sender: FDA-Public Use
  Company Number: US-AMGEN-USASP2011030223

PATIENT
  Age: 62 Year
  Sex: Female

DRUGS (3)
  1. ENBREL [Suspect]
     Dosage: UNK
     Dates: start: 20090101
  2. ENBREL [Suspect]
     Dosage: 50 MG, QWK
     Dates: start: 20101108
  3. ENBREL [Suspect]
     Indication: RHEUMATOID ARTHRITIS
     Dosage: 50 MG, QWK
     Route: 058
     Dates: start: 20100501

REACTIONS (7)
  - DERMATITIS CONTACT [None]
  - PRURITUS [None]
  - INJECTION SITE RASH [None]
  - INJECTION SITE PAIN [None]
  - OEDEMA PERIPHERAL [None]
  - CARTILAGE ATROPHY [None]
  - INJECTION SITE ERYTHEMA [None]
